FAERS Safety Report 4618159-X (Version None)
Quarter: 2005Q1

REPORT INFORMATION
  Report Type: 
  Country: None (occurrence: None)
  Receive Date: 20050323
  Receipt Date: 20050309
  Transmission Date: 20050727
  Serious: Yes (Other)
  Sender: FDA-Public Use
  Company Number: GBS050316867

PATIENT
  Age: 72 Year
  Sex: Male
  Weight: 90 kg

DRUGS (13)
  1. XIGRIS [Suspect]
     Indication: SEPSIS
     Dosage: 24 MG/KG/HR
     Dates: start: 20050216
  2. FRAGMIN (DILTEPARIN SODIUM) [Concomitant]
  3. FLUCONAZOLE [Concomitant]
  4. RANITIDINE [Concomitant]
  5. GLUTAMINE [Concomitant]
  6. ALFENTANIL [Concomitant]
  7. MIDAZOLAM HCL [Concomitant]
  8. AMIODARONE [Concomitant]
  9. SODIUM BICARBONATE [Concomitant]
  10. GENTAMICIN [Concomitant]
  11. CEFUROXIME [Concomitant]
  12. METRONIDAZOLE [Concomitant]
  13. VITAMIN K [Concomitant]

REACTIONS (1)
  - MYOCARDIAL INFARCTION [None]
